FAERS Safety Report 6738831-5 (Version None)
Quarter: 2010Q2

REPORT INFORMATION
  Report Type: 
  Country: None (occurrence: None)
  Receive Date: 20100524
  Receipt Date: 20100506
  Transmission Date: 20101027
  Serious: Yes (Other)
  Sender: FDA-Public Use
  Company Number: US-JNJFOC-20100503849

PATIENT
  Sex: Female
  Weight: 7.71 kg

DRUGS (4)
  1. CONCENTRATED MOTRIN INFANTS' [Suspect]
     Route: 048
  2. CONCENTRATED MOTRIN INFANTS' [Suspect]
     Indication: PYREXIA
     Route: 048
  3. CONCENTRATED TYLENOL INFANTS' [Suspect]
     Route: 048
  4. CONCENTRATED TYLENOL INFANTS' [Suspect]
     Indication: TEETHING
     Route: 048

REACTIONS (3)
  - EXPIRED DRUG ADMINISTERED [None]
  - PRODUCT QUALITY ISSUE [None]
  - PYREXIA [None]
